FAERS Safety Report 14704677 (Version 2)
Quarter: 2018Q2

REPORT INFORMATION
  Report Type: Spontaneous
  Country: US (occurrence: US)
  Receive Date: 20180402
  Receipt Date: 20180501
  Transmission Date: 20180711
  Serious: Yes (Death)
  Sender: FDA-Public Use
  Company Number: US-ROCHE-2101106

PATIENT
  Age: 70 Year
  Sex: Male

DRUGS (1)
  1. AVASTIN [Suspect]
     Active Substance: BEVACIZUMAB
     Indication: BRAIN NEOPLASM
     Route: 042
     Dates: start: 20170823, end: 20180326

REACTIONS (1)
  - Oncologic complication [Fatal]

NARRATIVE: CASE EVENT DATE: 201711
